FAERS Safety Report 8086929-4 (Version None)
Quarter: 2012Q1

REPORT INFORMATION
  Report Type: 
  Country: None (occurrence: None)
  Receive Date: 20120128
  Receipt Date: 20110615
  Transmission Date: 20120608
  Serious: No
  Sender: FDA-Public Use
  Company Number: US-ABBOTT-11P-163-0732779-00

PATIENT
  Age: 58 Year
  Sex: Female

DRUGS (1)
  1. HUMIRA [Suspect]
     Indication: RHEUMATOID ARTHRITIS
     Dates: start: 20110528

REACTIONS (4)
  - BURNING SENSATION [None]
  - DEFAECATION URGENCY [None]
  - ABDOMINAL PAIN UPPER [None]
  - MELAENA [None]
